FAERS Safety Report 9202073 (Version 2)
Quarter: 2014Q2

REPORT INFORMATION
  Report Type: Spontaneous
  Country: US (occurrence: US)
  Receive Date: 20130401
  Receipt Date: 20140414
  Transmission Date: 20141212
  Serious: Yes (Other)
  Sender: FDA-Public Use
  Company Number: US-BAYER-2013-039676

PATIENT
  Age: 18 Year
  Sex: Female

DRUGS (4)
  1. YASMIN [Suspect]
     Indication: ACNE
     Dosage: UNK
     Dates: start: 200506
  2. SINGULAIR [Concomitant]
     Dosage: 10 MG, UNK
  3. PREDNISONE [Concomitant]
     Dosage: 5 MG, UNK
  4. IPRATROPIUM [Concomitant]
     Route: 045

REACTIONS (8)
  - Cholelithiasis [None]
  - Cholecystitis [None]
  - Injury [None]
  - Pain [None]
  - Emotional distress [None]
  - Fear [None]
  - Pain [None]
  - Anxiety [None]
